FAERS Safety Report 5942261-3 (Version None)
Quarter: 2008Q4

REPORT INFORMATION
  Report Type: 
  Country: None (occurrence: None)
  Receive Date: 20081105
  Receipt Date: 20081028
  Transmission Date: 20090506
  Serious: Yes (Hospitalization)
  Sender: FDA-Public Use
  Company Number: PT-AMGEN-UK299886

PATIENT
  Sex: Female
  Weight: 49 kg

DRUGS (4)
  1. NEUPOGEN [Suspect]
     Indication: NEUTROPENIA
     Route: 042
     Dates: start: 20080721, end: 20080721
  2. ONDANSETRON HYDROCHLORIDE [Concomitant]
     Route: 042
     Dates: start: 20080324
  3. LEUCOVORIN CALCIUM [Concomitant]
     Route: 042
     Dates: start: 20080324
  4. FLUOROURACIL [Concomitant]
     Route: 042
     Dates: start: 20080324

REACTIONS (2)
  - BACK PAIN [None]
  - MUSCULOSKELETAL CHEST PAIN [None]
